FAERS Safety Report 4957356-0 (Version None)
Quarter: 2006Q1

REPORT INFORMATION
  Report Type: 
  Country: None (occurrence: None)
  Receive Date: 20060327
  Receipt Date: 20060322
  Transmission Date: 20060701
  Serious: Yes (Hospitalization)
  Sender: FDA-Public Use
  Company Number: S06-USA-00561-01

PATIENT
  Age: 16 Year
  Sex: Male

DRUGS (2)
  1. TESSALON [Suspect]
     Indication: COUGH
     Dosage: 100 MG ONCE PO
     Route: 048
     Dates: start: 20060208, end: 20060208
  2. ALLEREST (PHENYLEPHRINE/ACETAMINOPHEN/CHLORPHENIRAMINE) [Concomitant]

REACTIONS (7)
  - ABASIA [None]
  - AMNESIA [None]
  - COMMUNICATION DISORDER [None]
  - DISTURBANCE IN ATTENTION [None]
  - HAEMOGLOBIN INCREASED [None]
  - INFECTIOUS MONONUCLEOSIS [None]
  - THINKING ABNORMAL [None]
